FAERS Safety Report 8054220-8 (Version None)
Quarter: 2012Q1

REPORT INFORMATION
  Report Type: 
  Country: None (occurrence: None)
  Receive Date: 20120118
  Receipt Date: 20120109
  Transmission Date: 20120608
  Serious: Yes (Other)
  Sender: FDA-Public Use
  Company Number: CA-ROCHE-GNE295852

PATIENT
  Sex: Female
  Weight: 52.056 kg

DRUGS (5)
  1. ALVESCO [Concomitant]
     Indication: PRODUCT USED FOR UNKNOWN INDICATION
     Dosage: 200 UNK, UNK
  2. XOLAIR [Suspect]
     Indication: ASTHMA
     Dosage: 300 MG, 1/MONTH
     Route: 058
     Dates: start: 20060412
  3. XOLAIR [Suspect]
     Dosage: 300 MG, 1/MONTH
     Route: 058
     Dates: start: 20091202
  4. XOLAIR [Suspect]
     Route: 058
     Dates: start: 20100127
  5. ADVAIR DISKUS 100/50 [Concomitant]
     Indication: PRODUCT USED FOR UNKNOWN INDICATION
     Dosage: 500 UNK, UNK

REACTIONS (4)
  - STRESS [None]
  - BLOOD PRESSURE INCREASED [None]
  - INFLUENZA [None]
  - ASTHMA [None]
